FAERS Safety Report 15242555 (Version 1)
Quarter: 2018Q3

REPORT INFORMATION
  Report Type: Report from Study
  Country: None (occurrence: DE)
  Receive Date: 20180806
  Receipt Date: 20180806
  Transmission Date: 20181010
  Serious: Yes (Hospitalization, Other)
  Sender: FDA-Public Use
  Company Number: DE-ABBVIE-18K-062-2440106-00

PATIENT
  Age: 72 Year
  Sex: Female

DRUGS (9)
  1. ROACTEMRA [Concomitant]
     Active Substance: TOCILIZUMAB
     Dates: start: 2011, end: 2011
  2. MTX [Concomitant]
     Active Substance: METHOTREXATE SODIUM
     Dates: start: 2018
  3. REMICADE [Concomitant]
     Active Substance: INFLIXIMAB
     Indication: PRODUCT USED FOR UNKNOWN INDICATION
     Dates: start: 200511, end: 200602
  4. MTX [Concomitant]
     Active Substance: METHOTREXATE SODIUM
     Indication: PRODUCT USED FOR UNKNOWN INDICATION
     Dates: start: 200511, end: 2010
  5. ROACTEMRA [Concomitant]
     Active Substance: TOCILIZUMAB
     Dates: start: 2010
  6. STELARA [Suspect]
     Active Substance: USTEKINUMAB
     Indication: PRODUCT USED FOR UNKNOWN INDICATION
     Route: 065
  7. ROACTEMRA [Concomitant]
     Active Substance: TOCILIZUMAB
     Indication: PRODUCT USED FOR UNKNOWN INDICATION
     Dates: start: 200903, end: 2010
  8. ROACTEMRA [Concomitant]
     Active Substance: TOCILIZUMAB
     Dates: start: 2011, end: 201309
  9. HUMIRA [Suspect]
     Active Substance: ADALIMUMAB
     Indication: RHEUMATOID ARTHRITIS
     Route: 058
     Dates: start: 200506, end: 200509

REACTIONS (3)
  - Device related infection [Unknown]
  - Hip arthroplasty [Unknown]
  - Medical device site joint inflammation [Unknown]

NARRATIVE: CASE EVENT DATE: 20161129
